FAERS Safety Report 8383314 (Version 2)
Quarter: 2015Q1

REPORT INFORMATION
  Report Type: Report from Study
  Country: US (occurrence: US)
  Receive Date: 20120130
  Receipt Date: 20150226
  Transmission Date: 20150721
  Serious: Yes (Death)
  Sender: FDA-Public Use
  Company Number: US-ROCHE-1033605

PATIENT
  Sex: Female

DRUGS (24)
  1. PEGFILGRASTIM [Concomitant]
     Active Substance: PEGFILGRASTIM
     Route: 058
  2. ALIMTA [Concomitant]
     Active Substance: PEMETREXED DISODIUM
     Route: 042
  3. PERCOCET [Concomitant]
     Active Substance: ACETAMINOPHEN\OXYCODONE HYDROCHLORIDE
  4. OXYCODON [Concomitant]
     Active Substance: OXYCODONE
  5. EMEND [Concomitant]
     Active Substance: APREPITANT
     Route: 042
  6. VITAMIN B12 [Concomitant]
     Active Substance: CYANOCOBALAMIN
     Route: 042
  7. AVASTIN [Suspect]
     Active Substance: BEVACIZUMAB
     Indication: LUNG NEOPLASM MALIGNANT
     Route: 042
     Dates: start: 200806
  8. MS CONTIN [Concomitant]
     Active Substance: MORPHINE SULFATE
     Route: 065
  9. COMPAZINE [Concomitant]
     Active Substance: PROCHLORPERAZINE MALEATE
  10. REGLAN [Concomitant]
     Active Substance: METOCLOPRAMIDE HYDROCHLORIDE
  11. AVASTIN [Suspect]
     Active Substance: BEVACIZUMAB
     Route: 042
  12. GEMZAR [Concomitant]
     Active Substance: GEMCITABINE HYDROCHLORIDE
     Route: 042
  13. ARANESP [Concomitant]
     Active Substance: DARBEPOETIN ALFA
     Route: 042
  14. FENTANYL. [Concomitant]
     Active Substance: FENTANYL
     Route: 065
  15. GRANISETRON [Concomitant]
     Active Substance: GRANISETRON
     Route: 042
  16. LEXAPRO [Concomitant]
     Active Substance: ESCITALOPRAM OXALATE
     Route: 065
  17. CARBOPLATIN. [Concomitant]
     Active Substance: CARBOPLATIN
     Route: 042
  18. ALOXI [Concomitant]
     Active Substance: PALONOSETRON HYDROCHLORIDE
     Route: 042
  19. TAXOTERE [Concomitant]
     Active Substance: DOCETAXEL
     Route: 042
  20. ZOMETA [Concomitant]
     Active Substance: ZOLEDRONIC ACID
     Route: 042
  21. DECADRON [Concomitant]
     Active Substance: DEXAMETHASONE
     Route: 042
  22. FENTANYL. [Concomitant]
     Active Substance: FENTANYL
     Route: 065
  23. ZOFRAN [Concomitant]
     Active Substance: ONDANSETRON HYDROCHLORIDE
  24. SULAR [Concomitant]
     Active Substance: NISOLDIPINE
     Route: 065

REACTIONS (8)
  - Back pain [Unknown]
  - Metastases to bone [Unknown]
  - Arthralgia [Unknown]
  - Fatigue [Unknown]
  - Death [Fatal]
  - Vomiting [Unknown]
  - Nausea [Unknown]
  - Constipation [Unknown]
